FAERS Safety Report 8006262-6 (Version None)
Quarter: 2011Q4

REPORT INFORMATION
  Report Type: 
  Country: None (occurrence: None)
  Receive Date: 20111226
  Receipt Date: 20111215
  Transmission Date: 20120403
  Serious: Yes (Other)
  Sender: FDA-Public Use
  Company Number: PHHY2011NL109694

PATIENT
  Sex: Female

DRUGS (5)
  1. ZOMETA [Suspect]
     Dosage: 4 MG/ 5ML ONCE PER 42 DAYS
     Dates: start: 20111215
  2. ISOSORBIDE DINITRATE [Concomitant]
     Dosage: 1 DF, QD
  3. ZOMETA [Suspect]
     Dosage: 4 MG/ 5ML ONCE PER 42 DAYS
     Dates: start: 20111108
  4. ZOMETA [Suspect]
     Indication: BREAST CANCER METASTATIC
     Dosage: 4 MG/ 5ML ONCE PER 42 DAYS
     Dates: start: 20090604
  5. ACETYLSALICYLIC ACID SRT [Concomitant]
     Dosage: 1 DF, QD

REACTIONS (2)
  - MYOCARDIAL INFARCTION [None]
  - FATIGUE [None]
